FAERS Safety Report 4614829-8 (Version None)
Quarter: 2005Q1

REPORT INFORMATION
  Report Type: 
  Country: None (occurrence: None)
  Receive Date: 20050317
  Receipt Date: 20050317
  Transmission Date: 20050727
  Serious: Yes (Other)
  Sender: FDA-Public Use
  Company Number: None

PATIENT
  Sex: Female
  Weight: 58.1 kg

DRUGS (2)
  1. CYTOXAN [Suspect]
     Dosage: 600  MG/M2
     Dates: start: 20041229
  2. ADRIAMYCIN PFS [Suspect]
     Dosage: 60 MG/M2 IV X SIX CYCLES- EVERY 2 WEEKS
     Route: 042

REACTIONS (4)
  - DEHYDRATION [None]
  - FEBRILE NEUTROPENIA [None]
  - SEPSIS [None]
  - STOMATITIS [None]
